FAERS Safety Report 16429440 (Version 1)
Quarter: 2019Q2

REPORT INFORMATION
  Report Type: Report from Study
  Country: ES (occurrence: ES)
  Receive Date: 20190614
  Receipt Date: 20190614
  Transmission Date: 20190711
  Serious: Yes (Hospitalization, Other)
  Sender: FDA-Public Use
  Company Number: ES-SUN PHARMACEUTICAL INDUSTRIES LTD-2019RR-210326

PATIENT

DRUGS (5)
  1. DULOXETINE. [Suspect]
     Active Substance: DULOXETINE
     Indication: NEURALGIA
     Dosage: 60/24H
     Route: 065
  2. FENTANYL. [Suspect]
     Active Substance: FENTANYL
     Indication: NEURALGIA
     Dosage: 125 MICROGRAM/ 72 H (FENTANYL TTS)
     Route: 065
  3. FENTANYL. [Suspect]
     Active Substance: FENTANYL
     Indication: NEURALGIA
     Dosage: 100 MICROGRAM/ DEMAND DOSE
     Route: 065
  4. PREGABALIN. [Suspect]
     Active Substance: PREGABALIN
     Indication: NEURALGIA
     Dosage: 150/12H
     Route: 065
  5. TRAMADOL. [Suspect]
     Active Substance: TRAMADOL
     Indication: NEURALGIA
     Dosage: 50 MILLIGRAM, TID
     Route: 065

REACTIONS (4)
  - Drug withdrawal syndrome [Recovered/Resolved]
  - Off label use [Unknown]
  - Drug dependence [Recovered/Resolved]
  - Drug use disorder [Recovered/Resolved]
